FAERS Safety Report 15734167 (Version 3)
Quarter: 2019Q2

REPORT INFORMATION
  Report Type: Report from Study
  Country: FR (occurrence: FR)
  Receive Date: 20181218
  Receipt Date: 20190503
  Transmission Date: 20190711
  Serious: Yes (Hospitalization)
  Sender: FDA-Public Use
  Company Number: FR-ROCHE-2213837

PATIENT
  Age: 76 Year
  Sex: Male
  Weight: 65 kg

DRUGS (6)
  1. TOLEXINE [DOXYCYCLINE] [Concomitant]
     Indication: FOLLICULITIS
     Route: 065
     Dates: start: 20181105, end: 20181110
  2. COBIMETINIB. [Suspect]
     Active Substance: COBIMETINIB
     Indication: MALIGNANT MELANOMA
     Dosage: DATE OF MOST RECENT DOSE OF COBIMETINIB PRIOR TO AE ONSET: 04/NOV/2018.?COBIMETINIB 60 MG TABLETS OR
     Route: 048
     Dates: start: 20181025
  3. ROZEX [METRONIDAZOLE] [Concomitant]
     Indication: FOLLICULITIS
     Route: 065
     Dates: start: 20181108, end: 20190114
  4. DOLIPRANE [Concomitant]
     Active Substance: ACETAMINOPHEN
     Indication: FLANK PAIN
     Route: 065
     Dates: start: 201811, end: 20190114
  5. ATEZOLIZUMAB. [Suspect]
     Active Substance: ATEZOLIZUMAB
     Indication: MALIGNANT MELANOMA
     Dosage: DATE OF MOST RECENT DOSE OF ATEZOLIZUMAB PRIOR TO SAE ONSET: 25/OCT/2018?ATEZOLIZUMAB 840 MG AS IV I
     Route: 042
     Dates: start: 20181025
  6. XARELTO [Concomitant]
     Active Substance: RIVAROXABAN
     Indication: ATRIAL FIBRILLATION
     Route: 065
     Dates: start: 2015

REACTIONS (1)
  - Thrombocytopenia [Recovered/Resolved]

NARRATIVE: CASE EVENT DATE: 20181108
